FAERS Safety Report 23416229 (Version 3)
Quarter: 2024Q1

REPORT INFORMATION
  Report Type: Report from Study
  Country: US (occurrence: US)
  Receive Date: 20240118
  Receipt Date: 20240122
  Transmission Date: 20240410
  Serious: Yes (Death)
  Sender: FDA-Public Use
  Company Number: US-ABBVIE-5593697

PATIENT
  Age: 69 Year
  Sex: Male

DRUGS (4)
  1. DUOPA [Suspect]
     Active Substance: CARBIDOPA\LEVODOPA
     Indication: Parkinson^s disease
     Dosage: 2.8 ML/HR
     Route: 050
  2. DUOPA [Suspect]
     Active Substance: CARBIDOPA\LEVODOPA
     Indication: Dyskinesia
     Route: 050
     Dates: start: 20231109, end: 20240105
  3. DUOPA [Suspect]
     Active Substance: CARBIDOPA\LEVODOPA
     Indication: Product used for unknown indication
     Route: 050
  4. DUOPA [Suspect]
     Active Substance: CARBIDOPA\LEVODOPA
     Route: 050
     Dates: start: 202310, end: 20240105

REACTIONS (1)
  - Death [Fatal]

NARRATIVE: CASE EVENT DATE: 20240105
